FAERS Safety Report 11528901 (Version 3)
Quarter: 2015Q4

REPORT INFORMATION
  Report Type: Spontaneous
  Country: US (occurrence: US)
  Receive Date: 20150921
  Receipt Date: 20151009
  Transmission Date: 20160304
  Serious: No
  Sender: FDA-Public Use
  Company Number: US-PFIZER INC-2015312336

PATIENT
  Age: 55 Year
  Sex: Female
  Weight: 43 kg

DRUGS (3)
  1. AROMASIN [Suspect]
     Active Substance: EXEMESTANE
     Indication: BREAST CANCER
     Dosage: 25 MG, 1X/DAY (AT NIGHT)
     Route: 048
     Dates: start: 20150826, end: 20150918
  2. CLONAZEPAM. [Suspect]
     Active Substance: CLONAZEPAM
     Indication: ANXIETY
     Dosage: 0.5 MG, 1X/DAY (AT NIGHT)
     Route: 048
  3. AROMASIN [Suspect]
     Active Substance: EXEMESTANE
     Indication: BLOOD OESTROGEN INCREASED

REACTIONS (11)
  - Nausea [Not Recovered/Not Resolved]
  - Fatigue [Not Recovered/Not Resolved]
  - Somnolence [Not Recovered/Not Resolved]
  - Dry mouth [Not Recovered/Not Resolved]
  - Lip pain [Not Recovered/Not Resolved]
  - Dyspnoea [Not Recovered/Not Resolved]
  - Hot flush [Not Recovered/Not Resolved]
  - Cold sweat [Unknown]
  - Emotional disorder [Recovered/Resolved]
  - Pain in extremity [Recovering/Resolving]
  - Stomatitis [Unknown]
